FAERS Safety Report 6124419-6 (Version None)
Quarter: 2009Q1

REPORT INFORMATION
  Report Type: 
  Country: None (occurrence: None)
  Receive Date: 20090317
  Receipt Date: 20090317
  Transmission Date: 20090719
  Serious: Yes (Other)
  Sender: FDA-Public Use
  Company Number: None

PATIENT
  Age: 21 Year
  Sex: Female
  Weight: 45.3597 kg

DRUGS (1)
  1. OCELLA [Suspect]

REACTIONS (8)
  - ABDOMINAL DISTENSION [None]
  - ABDOMINAL PAIN [None]
  - IRRITABILITY [None]
  - MALAISE [None]
  - MENORRHAGIA [None]
  - MOOD ALTERED [None]
  - POLYMENORRHOEA [None]
  - PRODUCT QUALITY ISSUE [None]
